FAERS Safety Report 10083816 (Version 3)
Quarter: 2014Q4

REPORT INFORMATION
  Report Type: Report from Study
  Country: MX (occurrence: MX)
  Receive Date: 20140417
  Receipt Date: 20141128
  Transmission Date: 20150528
  Serious: Yes (Hospitalization, Other)
  Sender: FDA-Public Use
  Company Number: MX-ORION CORPORATION ORION PHARMA-ENTC2014-0136

PATIENT
  Age: 77 Year
  Sex: Female
  Weight: 45 kg

DRUGS (11)
  1. MVI [Concomitant]
     Active Substance: VITAMINS
     Route: 065
  2. CHLORHEXIDINE GLUCONATE. [Concomitant]
     Active Substance: CHLORHEXIDINE GLUCONATE
     Route: 065
  3. STALEVO [Suspect]
     Active Substance: CARBIDOPA\ENTACAPONE\LEVODOPA
     Dosage: STRENGTH: 100/25/200 MG
     Route: 048
     Dates: start: 2014
  4. XARELTO [Suspect]
     Active Substance: RIVAROXABAN
     Indication: THROMBOSIS
     Route: 065
     Dates: start: 2012
  5. STALEVO [Suspect]
     Active Substance: CARBIDOPA\ENTACAPONE\LEVODOPA
     Indication: SPINAL DISORDER
     Dosage: STRENGTH: 100/25/200 MG
     Route: 048
  6. XARELTO [Suspect]
     Active Substance: RIVAROXABAN
     Indication: ANTICOAGULANT THERAPY
     Route: 065
  7. OMEPRAZOLE. [Concomitant]
     Active Substance: OMEPRAZOLE
     Route: 065
  8. LADOGAL [Concomitant]
     Active Substance: DANAZOL
     Route: 065
     Dates: start: 2010
  9. ACIFOL [Concomitant]
     Route: 065
  10. FERROTEMP [Concomitant]
     Route: 065
  11. ORTHO NOVUM [Concomitant]
     Route: 065

REACTIONS (5)
  - Gastritis [Unknown]
  - Product use issue [Unknown]
  - Gastric ulcer [Not Recovered/Not Resolved]
  - Haematemesis [Recovered/Resolved]
  - Vomiting [Recovered/Resolved]

NARRATIVE: CASE EVENT DATE: 20140327
